FAERS Safety Report 9418811 (Version 3)
Quarter: 2013Q4

REPORT INFORMATION
  Report Type: Spontaneous
  Country: US (occurrence: US)
  Receive Date: 20130725
  Receipt Date: 20131003
  Transmission Date: 20140711
  Serious: No
  Sender: FDA-Public Use
  Company Number: US-PFIZER INC-2013214601

PATIENT
  Age: 70 Year
  Sex: Female
  Weight: 70.3 kg

DRUGS (10)
  1. PREMARIN [Suspect]
     Indication: ATROPHIC VULVOVAGINITIS
     Dosage: 1 G, WEEKLY
     Route: 067
  2. PREMARIN [Suspect]
     Dosage: 1 G, 3X/WEEK
     Route: 067
  3. ESTRACE [Suspect]
     Dosage: UNK
  4. AMLODIPINE [Concomitant]
     Indication: HYPERTENSION
     Dosage: 5/10MG, DAILY
  5. METOPROLOL [Concomitant]
     Dosage: UNK
  6. ACTONEL [Concomitant]
     Dosage: UNK
  7. HIPREX [Concomitant]
     Dosage: 100 MG, 3X/DAY
  8. ELMIRON [Concomitant]
     Dosage: 100 MG, 2X/DAY
  9. RANITIDINE [Concomitant]
     Dosage: 300 MG, 2X/DAY
  10. PREMARIN [Concomitant]
     Dosage: 0.625 G, UNK

REACTIONS (1)
  - Urticaria [Unknown]
